FAERS Safety Report 7297741-8 (Version None)
Quarter: 2011Q1

REPORT INFORMATION
  Report Type: 
  Country: None (occurrence: None)
  Receive Date: 20110214
  Receipt Date: 20110214
  Transmission Date: 20110831
  Serious: Yes (Hospitalization, Other)
  Sender: FDA-Public Use
  Company Number: None

PATIENT
  Age: 31 Year
  Sex: Female
  Weight: 63.05 kg

DRUGS (13)
  1. NEBULIZER [Concomitant]
  2. MORPHINE SULFATE [Concomitant]
  3. ALBUTEROL [Concomitant]
  4. VENTOLIN [Concomitant]
  5. ALBUTEROL [Concomitant]
  6. HYDROCORTISONE [Concomitant]
  7. METHOTREXATE [Suspect]
     Indication: RHEUMATOID ARTHRITIS
     Dosage: 15 MG WEEKLY PO
     Route: 048
  8. LOVENOX [Concomitant]
  9. VISTARIL [Concomitant]
  10. VITAMIN B-12 [Concomitant]
  11. HEPARIN [Concomitant]
  12. ZOFRAN [Concomitant]
  13. ZOFRAN [Concomitant]

REACTIONS (5)
  - DIARRHOEA [None]
  - SUICIDE ATTEMPT [None]
  - VOMITING [None]
  - ABDOMINAL PAIN UPPER [None]
  - WEIGHT DECREASED [None]
